FAERS Safety Report 6997169-1 (Version None)
Quarter: 2010Q3

REPORT INFORMATION
  Report Type: 
  Country: None (occurrence: None)
  Receive Date: 20100918
  Receipt Date: 20091020
  Transmission Date: 20110219
  Serious: No
  Sender: FDA-Public Use
  Company Number: US-WYE-H10959909

PATIENT
  Sex: Female
  Weight: 60.38 kg

DRUGS (3)
  1. PRISTIQ [Suspect]
     Indication: DEPRESSION
     Route: 048
     Dates: start: 20090815, end: 20090911
  2. VALIUM [Concomitant]
     Dosage: 2.5 MG PRN
  3. SYNTHROID [Concomitant]

REACTIONS (6)
  - ANGER [None]
  - CONDITION AGGRAVATED [None]
  - CRYING [None]
  - DEPRESSION [None]
  - DRUG INEFFECTIVE [None]
  - IRRITABILITY [None]
